FAERS Safety Report 14933773 (Version 3)
Quarter: 2019Q2

REPORT INFORMATION
  Report Type: Spontaneous
  Country: US (occurrence: US)
  Receive Date: 20180524
  Receipt Date: 20190429
  Transmission Date: 20190711
  Serious: No
  Sender: FDA-Public Use
  Company Number: US-PFIZER INC-2018008774

PATIENT
  Age: 77 Year
  Sex: Female
  Weight: 98 kg

DRUGS (3)
  1. DOCETAXEL. [Suspect]
     Active Substance: DOCETAXEL
     Indication: BREAST CANCER
     Dosage: UNK, SINGLE/01 CYCLE
     Dates: start: 20150501, end: 20150501
  2. DOCETAXEL. [Suspect]
     Active Substance: DOCETAXEL
     Dosage: 80MG EVERY THREE WEEKS FOR 6 CYCLES
     Dates: start: 20150427, end: 20150810
  3. PARAPLATIN [Concomitant]
     Active Substance: CARBOPLATIN
     Dosage: UNK

REACTIONS (5)
  - Madarosis [Not Recovered/Not Resolved]
  - Hair colour changes [Unknown]
  - Alopecia [Not Recovered/Not Resolved]
  - Hair texture abnormal [Unknown]
  - Hair disorder [Unknown]

NARRATIVE: CASE EVENT DATE: 201508
